FAERS Safety Report 8985837 (Version 4)
Quarter: 2013Q1

REPORT INFORMATION
  Report Type: Spontaneous
  Country: US (occurrence: US)
  Receive Date: 20121226
  Receipt Date: 20130110
  Transmission Date: 20140127
  Serious: No
  Sender: FDA-Public Use
  Company Number: US-VERTEX PHARMACEUTICALS INC.-2012-026013

PATIENT
  Age: 56 Year
  Sex: Female
  Weight: 84 kg

DRUGS (6)
  1. INCIVEK [Suspect]
     Indication: HEPATITIS C
     Dosage: 750 MG, TID
     Route: 048
     Dates: start: 20121207
  2. PEGASYS [Suspect]
     Indication: HEPATITIS C
     Dosage: 180 ?G, QW
     Route: 058
     Dates: start: 20121207
  3. RIBAVIRIN [Suspect]
     Indication: HEPATITIS C
     Dosage: 600 MG, BID
     Route: 048
     Dates: start: 20121207
  4. HYDROXYZ HCL [Concomitant]
     Dosage: 25 MG, UNK
  5. CELEXA                             /00582602/ [Concomitant]
     Dosage: 10 MG, UNK
  6. PRILOSEC                           /00661201/ [Concomitant]
     Dosage: 20 MG, UNK

REACTIONS (13)
  - Inappropriate schedule of drug administration [Recovered/Resolved]
  - Chest pain [Recovered/Resolved]
  - Glossodynia [Not Recovered/Not Resolved]
  - Tongue blistering [Not Recovered/Not Resolved]
  - Anxiety [Unknown]
  - Burning sensation [Not Recovered/Not Resolved]
  - Headache [Unknown]
  - Irritability [Unknown]
  - Chills [Recovered/Resolved]
  - Fatigue [Not Recovered/Not Resolved]
  - Erythema [Not Recovered/Not Resolved]
  - Rash macular [Recovered/Resolved]
  - Rash erythematous [Not Recovered/Not Resolved]
